FAERS Safety Report 9630968 (Version 2)
Quarter: 2014Q1

REPORT INFORMATION
  Report Type: Spontaneous
  Country: JP (occurrence: JP)
  Receive Date: 20131018
  Receipt Date: 20140328
  Transmission Date: 20141002
  Serious: Yes (Hospitalization)
  Sender: FDA-Public Use
  Company Number: JP-SA-2013SA103677

PATIENT
  Age: 39 Year
  Sex: Female

DRUGS (1)
  1. DDAVP [Suspect]
     Route: 065

REACTIONS (1)
  - Hypertrophic cardiomyopathy [Unknown]
